FAERS Safety Report 9878730 (Version 2)
Quarter: 2014Q1

REPORT INFORMATION
  Report Type: Spontaneous
  Country: None (occurrence: US)
  Receive Date: 20140206
  Receipt Date: 20140206
  Transmission Date: 20141002
  Serious: No
  Sender: FDA-Public Use
  Company Number: US-ALLERGAN-1309731US

PATIENT
  Age: 49 Year
  Sex: Female

DRUGS (3)
  1. BOTOX [Suspect]
     Indication: MIGRAINE
     Dosage: 100 UNITS, SINGLE
     Route: 030
     Dates: start: 20130620, end: 20130620
  2. BOTOX [Suspect]
     Dosage: UNK
  3. OTC SUPPLEMENTS [Concomitant]
     Indication: SUPPLEMENTATION THERAPY
     Dosage: UNK

REACTIONS (3)
  - Asthenopia [Unknown]
  - Eyelid ptosis [Unknown]
  - Migraine [Unknown]
